FAERS Safety Report 9487255 (Version 1)
Quarter: 2013Q3

REPORT INFORMATION
  Report Type: Spontaneous
  Country: US (occurrence: US)
  Receive Date: 20130829
  Receipt Date: 20130829
  Transmission Date: 20140515
  Serious: Yes (Other)
  Sender: FDA-Public Use
  Company Number: US-BAYER-2013-104462

PATIENT
  Age: 60 Year
  Sex: Female
  Weight: 82.99 kg

DRUGS (5)
  1. BAYER ADVANCED ASPIRIN EXTRA STRENGTH [Suspect]
     Indication: ARTHRITIS
     Dosage: 4 DF, QD
     Route: 048
  2. BAYER ADVANCED ASPIRIN EXTRA STRENGTH [Suspect]
     Indication: NECK PAIN
     Dosage: 4 DF, BID
  3. GABAPENTIN [Concomitant]
  4. METFORMIN [Concomitant]
  5. LISINOPRIL [Concomitant]

REACTIONS (4)
  - Drug dependence [None]
  - Drug effect incomplete [None]
  - Incorrect drug administration duration [None]
  - Inappropriate schedule of drug administration [None]
